FAERS Safety Report 6171136-2 (Version None)
Quarter: 2009Q2

REPORT INFORMATION
  Report Type: 
  Country: None (occurrence: None)
  Receive Date: 20090428
  Receipt Date: 20090428
  Transmission Date: 20091009
  Serious: Yes (Other)
  Sender: FDA-Public Use
  Company Number: None

PATIENT
  Age: 62 Year
  Sex: Female
  Weight: 78.0187 kg

DRUGS (3)
  1. ZOLPIDEM [Suspect]
     Indication: INSOMNIA
     Dosage: 5MG DAILY PO
     Route: 048
     Dates: start: 20090419, end: 20090425
  2. TYLENOL PRN [Concomitant]
  3. TRAMADOL PRN [Concomitant]

REACTIONS (3)
  - DIPLOPIA [None]
  - MENINGEAL DISORDER [None]
  - VITH NERVE PARALYSIS [None]
